FAERS Safety Report 7834302-3 (Version None)
Quarter: 2011Q4

REPORT INFORMATION
  Report Type: 
  Country: None (occurrence: None)
  Receive Date: 20111024
  Receipt Date: 20091104
  Transmission Date: 20120403
  Serious: Yes (Death)
  Sender: FDA-Public Use
  Company Number: ZA-UCBSA-002196

PATIENT
  Age: 74 Year
  Sex: Female
  Weight: 49 kg

DRUGS (4)
  1. KAMPTAN [Concomitant]
     Indication: PARKINSON'S DISEASE
     Route: 048
     Dates: start: 20040101
  2. ROTIGOTINE [Suspect]
     Dosage: 80 CM2
     Dates: start: 20040621
  3. SYMMETRYL [Concomitant]
     Indication: PARKINSON'S DISEASE
     Route: 048
     Dates: start: 20040101
  4. CARBILEV [Concomitant]
     Indication: PARKINSON'S DISEASE
     Route: 048
     Dates: start: 20040101

REACTIONS (1)
  - DEATH [None]
